FAERS Safety Report 7009745 (Version 2)
Quarter: 2014Q3

REPORT INFORMATION
  Report Type: Spontaneous
  Country: US (occurrence: None)
  Receive Date: 20090526
  Receipt Date: 20140912
  Transmission Date: 20150326
  Serious: Yes (Other)
  Sender: FDA-Public Use
  Company Number: 2009S1004135

PATIENT
  Age: 77 Year
  Sex: Male
  Weight: 87 kg

DRUGS (9)
  1. SIMVASTATIN. [Concomitant]
     Active Substance: SIMVASTATIN
  2. METOPROLOL [Concomitant]
     Active Substance: METOPROLOL
  3. SODIUM PHOSPHATE, DIBASIC\SODIUM PHOSPHATE, MONOBASIC, ANHYDROUS [Suspect]
     Active Substance: SODIUM PHOSPHATE, DIBASIC\SODIUM PHOSPHATE, MONOBASIC, ANHYDROUS
     Indication: COLONOSCOPY
     Dosage: PO
     Route: 048
     Dates: start: 200808, end: 200808
  4. GLIMEPIRIDE. [Concomitant]
     Active Substance: GLIMEPIRIDE
  5. ACTOS [Concomitant]
     Active Substance: PIOGLITAZONE HYDROCHLORIDE
  6. COLACE [Concomitant]
     Active Substance: DOCUSATE SODIUM
  7. LISINOPRIL + HIDROCLOROTIAZIDA (HYDROCHLOROTHIAZIDE, LISINOPRIL) [Concomitant]
  8. LANTUS [Concomitant]
     Active Substance: INSULIN GLARGINE
  9. PRILOSEC (OMEPRAZOLE) [Concomitant]
     Active Substance: OMEPRAZOLE MAGNESIUM

REACTIONS (3)
  - Hyperparathyroidism secondary [None]
  - Renal failure chronic [None]
  - Nephrogenic anaemia [None]

NARRATIVE: CASE EVENT DATE: 200808
